FAERS Safety Report 7262727-6 (Version None)
Quarter: 2011Q1

REPORT INFORMATION
  Report Type: 
  Country: None (occurrence: None)
  Receive Date: 20110130
  Receipt Date: 20100926
  Transmission Date: 20110831
  Serious: No
  Sender: FDA-Public Use
  Company Number: US-ABBOTT-10P-163-0673882-00

PATIENT
  Age: 57 Year
  Sex: Female

DRUGS (7)
  1. UNKNOWN INHALER [Concomitant]
     Indication: ASTHMA
  2. UNKNOWN MEDICATION [Suspect]
     Indication: PRODUCT USED FOR UNKNOWN INDICATION
  3. HYDROCHLOROTHIAZIDE [Concomitant]
     Indication: FLUID RETENTION
     Dosage: 25 MG BID
  4. IMODIUM [Concomitant]
     Indication: DIARRHOEA
  5. ACCOLATE [Concomitant]
     Indication: ASTHMA
     Dosage: 20 MG DAILY
  6. HUMIRA [Suspect]
     Indication: CROHN'S DISEASE
     Dates: start: 20100701
  7. CELEXA [Concomitant]
     Indication: ANXIOLYTIC THERAPY
     Dosage: 20 MG DAILY

REACTIONS (1)
  - ALOPECIA [None]
